FAERS Safety Report 4594939-4 (Version None)
Quarter: 2005Q1

REPORT INFORMATION
  Report Type: 
  Country: None (occurrence: None)
  Receive Date: 20050301
  Receipt Date: 20050211
  Transmission Date: 20050727
  Serious: Yes (Death, Hospitalization, Other)
  Sender: FDA-Public Use
  Company Number: PHEH2005US01970

PATIENT
  Age: 50 Year
  Sex: Male

DRUGS (22)
  1. ZOFRAN [Concomitant]
     Indication: VOMITING
     Dosage: 4 MG Q8H, PRN
     Dates: start: 20050115
  2. LANTUS [Concomitant]
     Indication: DIABETES MELLITUS
  3. NOVOLOG [Concomitant]
     Indication: DIABETES MELLITUS
  4. ZELNORM [Suspect]
     Indication: DIABETIC GASTROPARESIS
     Dosage: 6 MG, BID
     Dates: start: 20050115
  5. METOPROLOL TARTRATE [Concomitant]
  6. ACETYLSALICYLATE [Concomitant]
  7. OMNICEF [Concomitant]
     Dosage: 300 MG, BID
  8. PLAVIX [Concomitant]
     Dosage: 75 MG, QD
  9. LEVAQUIN [Concomitant]
  10. SYNTHROID [Concomitant]
  11. XANAX [Concomitant]
     Dosage: 1 MG, TID
     Dates: start: 20050121
  12. FOLTX [Concomitant]
     Dosage: UNK, QD
  13. MIRAPEX [Concomitant]
  14. COMPAZINE [Concomitant]
  15. RENAGEL [Concomitant]
     Dosage: 800 MG, TID
  16. REGLAN [Concomitant]
     Dosage: 5 MG, TID
     Dates: start: 20050121
  17. REGLAN [Concomitant]
     Dosage: 20 MG, BID
  18. COREG [Concomitant]
     Dosage: 12.5 MG, BID
  19. INSULIN [Concomitant]
  20. SINEMET [Concomitant]
     Dosage: 25/100 MG, TID
  21. KYTRIL [Concomitant]
     Dosage: UNK, PRN
  22. CORDARONE [Concomitant]
     Dosage: 200 MG, BID

REACTIONS (25)
  - ABDOMINAL DISCOMFORT [None]
  - ASTHENIA [None]
  - BARRETT'S OESOPHAGUS [None]
  - BLOOD CHLORIDE DECREASED [None]
  - CARDIO-RESPIRATORY ARREST [None]
  - CARDIOMYOPATHY [None]
  - CIRCULATORY COLLAPSE [None]
  - DECUBITUS ULCER [None]
  - DIABETES MELLITUS INADEQUATE CONTROL [None]
  - DIZZINESS [None]
  - DYSPNOEA [None]
  - GASTRITIS [None]
  - HAEMATOCRIT DECREASED [None]
  - HAEMODIALYSIS [None]
  - HAEMOGLOBIN DECREASED [None]
  - HIATUS HERNIA [None]
  - HYPOKALAEMIA [None]
  - HYPOTENSION [None]
  - NAUSEA [None]
  - RECTAL HAEMORRHAGE [None]
  - RENAL FAILURE CHRONIC [None]
  - RESPIRATORY ARREST [None]
  - RESUSCITATION [None]
  - VOMITING [None]
  - WOUND [None]
